FAERS Safety Report 26130282 (Version 2)
Quarter: 2025Q4

REPORT INFORMATION
  Report Type: Spontaneous
  Country: JP (occurrence: JP)
  Receive Date: 20251208
  Receipt Date: 20251218
  Transmission Date: 20260119
  Serious: Yes (Hospitalization)
  Sender: CHEPLAPHARM
  Company Number: JP-CHEPLA-2025013751

PATIENT
  Age: 87 Year
  Sex: Female

DRUGS (2)
  1. VALGANCICLOVIR [Suspect]
     Active Substance: VALGANCICLOVIR
     Indication: Systemic lupus erythematosus
     Route: 048
  2. BENLYSTA [Concomitant]
     Active Substance: BELIMUMAB

REACTIONS (2)
  - Peripheral vein thrombosis [Recovered/Resolved]
  - Off label use [Unknown]
